FAERS Safety Report 25803511 (Version 6)
Quarter: 2025Q4

REPORT INFORMATION
  Report Type: Report from Study
  Country: CA (occurrence: CA)
  Receive Date: 20250915
  Receipt Date: 20251029
  Transmission Date: 20260118
  Serious: Yes (Hospitalization)
  Sender: HLS THERAPEUTICS
  Company Number: CA-HLS-202502422

PATIENT
  Sex: Female

DRUGS (1)
  1. CLOZARIL [Suspect]
     Active Substance: CLOZAPINE
     Indication: Product used for unknown indication
     Dosage: DOSE IS BEING TAPERED TO DISCONTINUATION
     Route: 048
     Dates: start: 20250812, end: 20251004

REACTIONS (3)
  - Neutrophil count decreased [Recovered/Resolved]
  - Eating disorder [Unknown]
  - Drug ineffective [Unknown]
